FAERS Safety Report 9924619 (Version 4)
Quarter: 2014Q2

REPORT INFORMATION
  Report Type: Spontaneous
  Country: US (occurrence: US)
  Receive Date: 20140226
  Receipt Date: 20140616
  Transmission Date: 20141212
  Serious: No
  Sender: FDA-Public Use
  Company Number: US-PFIZER INC-2014053762

PATIENT
  Age: 38 Year
  Sex: Female

DRUGS (5)
  1. CHANTIX [Suspect]
     Dosage: UNK
  2. PRISTIQ [Suspect]
     Dosage: UNK
  3. WELLBUTRIN [Suspect]
     Dosage: UNK
  4. KEFLEX [Suspect]
     Dosage: UNK
  5. LEXAPRO [Suspect]
     Dosage: UNK

REACTIONS (1)
  - Hypersensitivity [Unknown]
